FAERS Safety Report 21623633 (Version 2)
Quarter: 2023Q1

REPORT INFORMATION
  Report Type: Report from Study
  Country: US (occurrence: US)
  Receive Date: 20221121
  Receipt Date: 20230213
  Transmission Date: 20230417
  Serious: Yes (Other)
  Sender: FDA-Public Use
  Company Number: US-ABBVIE-4208044

PATIENT
  Age: 75 Year
  Sex: Female

DRUGS (1)
  1. HUMIRA [Suspect]
     Active Substance: ADALIMUMAB
     Indication: Rheumatoid arthritis
     Dosage: CITRATE FREE
     Route: 058

REACTIONS (5)
  - Wrist fracture [Recovering/Resolving]
  - Fall [Unknown]
  - Wrist fracture [Recovering/Resolving]
  - Fall [Recovered/Resolved]
  - Hand deformity [Recovering/Resolving]

NARRATIVE: CASE EVENT DATE: 20221201
